FAERS Safety Report 4749160-3 (Version None)
Quarter: 2005Q3

REPORT INFORMATION
  Report Type: 
  Country: None (occurrence: None)
  Receive Date: 20050812
  Receipt Date: 20050504
  Transmission Date: 20060218
  Serious: Yes (Hospitalization)
  Sender: FDA-Public Use
  Company Number: 398716

PATIENT
  Age: 46 Year
  Sex: Female

DRUGS (2)
  1. PEGASYS [Suspect]
     Indication: HEPATITIS C VIRUS
     Dates: start: 20050102, end: 20050307
  2. COPEGUS [Suspect]
     Indication: HEPATITIS C VIRUS
     Dates: start: 20050102, end: 20050307

REACTIONS (9)
  - ASTHENIA [None]
  - COLITIS [None]
  - DEHYDRATION [None]
  - DEPRESSION [None]
  - DIARRHOEA INFECTIOUS [None]
  - SUICIDAL IDEATION [None]
  - VOMITING [None]
  - WEIGHT DECREASED [None]
  - WHITE BLOOD CELL COUNT DECREASED [None]
